FAERS Safety Report 6261286-4 (Version None)
Quarter: 2009Q3

REPORT INFORMATION
  Report Type: 
  Country: None (occurrence: None)
  Receive Date: 20090709
  Receipt Date: 20090402
  Transmission Date: 20100115
  Serious: No
  Sender: FDA-Public Use
  Company Number: US-KINGPHARMUSA00001-K200900383

PATIENT
  Sex: Female

DRUGS (2)
  1. LEVOXYL [Suspect]
     Indication: HYPOTHYROIDISM
     Dosage: ^0.225,^ QD
     Route: 048
     Dates: start: 20050101, end: 20090101
  2. LEVOXYL [Suspect]
     Dosage: ^0.2,^ UNK
     Route: 048
     Dates: start: 20090101

REACTIONS (2)
  - BLOOD THYROID STIMULATING HORMONE INCREASED [None]
  - HYPOAESTHESIA [None]
